FAERS Safety Report 15067739 (Version 1)
Quarter: 2018Q2

REPORT INFORMATION
  Report Type: Spontaneous
  Country: US (occurrence: US)
  Receive Date: 20180606
  Receipt Date: 20180606
  Transmission Date: 20180711
  Serious: Yes (Other)
  Sender: FDA-Public Use
  Company Number: None

PATIENT
  Age: 35 Year
  Sex: Female
  Weight: 67.13 kg

DRUGS (2)
  1. BUPROPION 150MG [Suspect]
     Active Substance: BUPROPION HYDROCHLORIDE
     Indication: ANXIETY
  2. BUPROPION 150MG [Suspect]
     Active Substance: BUPROPION HYDROCHLORIDE
     Indication: MAJOR DEPRESSION
     Route: 048
     Dates: start: 201801

REACTIONS (4)
  - Therapeutic response decreased [None]
  - Product substitution issue [None]
  - Anxiety [None]
  - Agitation [None]

NARRATIVE: CASE EVENT DATE: 20180401
